FAERS Safety Report 21957637 (Version 7)
Quarter: 2024Q1

REPORT INFORMATION
  Report Type: Spontaneous
  Country: US (occurrence: US)
  Receive Date: 20230206
  Receipt Date: 20240214
  Transmission Date: 20240410
  Serious: Yes (Other)
  Sender: FDA-Public Use
  Company Number: US-PFIZER INC-PV202300022216

PATIENT
  Age: 46 Year
  Sex: Female

DRUGS (7)
  1. CIBINQO [Suspect]
     Active Substance: ABROCITINIB
     Indication: Dermatitis atopic
     Dosage: 200 MG
     Route: 048
  2. CIBINQO [Suspect]
     Active Substance: ABROCITINIB
     Indication: Neurodermatitis
     Dosage: 100 MG
     Route: 048
  3. CIBINQO [Suspect]
     Active Substance: ABROCITINIB
     Indication: Eczema
  4. CIBINQO [Suspect]
     Active Substance: ABROCITINIB
     Indication: Lichen sclerosus
  5. CIBINQO [Suspect]
     Active Substance: ABROCITINIB
     Indication: Rash erythematous
  6. METHOTREXATE [Concomitant]
     Active Substance: METHOTREXATE
     Indication: Chemotherapy
     Dosage: UNK
  7. FOLIC ACID [Concomitant]
     Active Substance: FOLIC ACID
     Dosage: UNK

REACTIONS (7)
  - Hysterectomy [Unknown]
  - COVID-19 [Recovered/Resolved]
  - Hot flush [Unknown]
  - Blood uric acid increased [Unknown]
  - Blood cholesterol increased [Unknown]
  - Ear infection [Unknown]
  - COVID-19 [Unknown]

NARRATIVE: CASE EVENT DATE: 20230101
